FAERS Safety Report 13783897 (Version 5)
Quarter: 2017Q3

REPORT INFORMATION
  Report Type: Spontaneous
  Country: US (occurrence: US)
  Receive Date: 20170724
  Receipt Date: 20170817
  Transmission Date: 20171127
  Serious: No
  Sender: FDA-Public Use
  Company Number: US-009507513-1707USA006563

PATIENT
  Age: 32 Year
  Sex: Female
  Weight: 60.32 kg

DRUGS (3)
  1. MENOPUR [Concomitant]
     Active Substance: FOLLITROPIN\LUTEINIZING HORMONE
     Dosage: 150 DF, UNK
     Route: 058
     Dates: start: 20170630, end: 20170710
  2. GONAL-F [Concomitant]
     Active Substance: FOLLITROPIN
     Dosage: 150 DF, UNK
     Route: 058
     Dates: start: 20170630, end: 20170710
  3. GANIRELIX ACETATE INJECTION [Suspect]
     Active Substance: GANIRELIX ACETATE
     Indication: INFERTILITY FEMALE
     Dosage: 250 MICROGRAM, DAILY
     Route: 058
     Dates: start: 20170703, end: 20170705

REACTIONS (5)
  - Pelvic pain [Recovered/Resolved]
  - Pain in extremity [Recovered/Resolved]
  - Arthralgia [Recovered/Resolved]
  - Burning sensation [Recovered/Resolved]
  - Myalgia [Recovered/Resolved]

NARRATIVE: CASE EVENT DATE: 201707
